FAERS Safety Report 4719333-4 (Version None)
Quarter: 2005Q3

REPORT INFORMATION
  Report Type: 
  Country: None (occurrence: None)
  Receive Date: 20050719
  Receipt Date: 20050704
  Transmission Date: 20060218
  Serious: Yes (Death, Hospitalization)
  Sender: FDA-Public Use
  Company Number: 2005EU001435

PATIENT
  Age: 51 Year
  Sex: Male

DRUGS (6)
  1. FK506(TACROLIMUS) CAPSULE [Suspect]
     Indication: LIVER TRANSPLANT
     Dosage: BID ORAL
     Route: 048
     Dates: start: 20050616, end: 20050616
  2. MYCOPHENOLATE MOFETIL (MYCOPHENOLATE MOFETIL) [Suspect]
     Indication: LIVER TRANSPLANT
     Dosage: 100.00 MG IUD/QD IV NOS
     Route: 042
     Dates: start: 20050615, end: 20050616
  3. INSULIN [Concomitant]
  4. PANTOPRAZOLE SODIUM [Concomitant]
  5. CIPROFLOXACIN [Concomitant]
  6. METHYLPREDNISOLONE [Suspect]
     Indication: LIVER TRANSPLANT
     Dosage: MG
     Dates: start: 20050615, end: 20050620

REACTIONS (13)
  - ABDOMINAL WALL DISORDER [None]
  - COAGULOPATHY [None]
  - DIALYSIS [None]
  - GENERAL PHYSICAL HEALTH DETERIORATION [None]
  - GRAFT DYSFUNCTION [None]
  - HAEMORRHAGE [None]
  - HYPOTENSION [None]
  - INTRA-ABDOMINAL HAEMORRHAGE [None]
  - OLIGURIA [None]
  - PERITONITIS [None]
  - PYREXIA [None]
  - RIGHT VENTRICULAR FAILURE [None]
  - TACHYCARDIA [None]
